FAERS Safety Report 6890187-3 (Version None)
Quarter: 2010Q3

REPORT INFORMATION
  Report Type: 
  Country: None (occurrence: None)
  Receive Date: 20100730
  Receipt Date: 20080822
  Transmission Date: 20110219
  Serious: Yes (Hospitalization)
  Sender: FDA-Public Use
  Company Number: US-PFIZER INC-2008043752

PATIENT
  Age: 65 Year
  Sex: Male

DRUGS (5)
  1. LIPITOR [Suspect]
  2. PROVIGIL [Suspect]
     Indication: CIRCADIAN RHYTHM SLEEP DISORDER
     Route: 048
     Dates: start: 20070920, end: 20080313
  3. TOPROL-XL [Suspect]
  4. TAMSULOSIN HCL [Suspect]
  5. KLONOPIN [Suspect]
     Dosage: 1/2 TO 1 TABLET DAILY
     Route: 048

REACTIONS (1)
  - EPISTAXIS [None]
